FAERS Safety Report 22063232 (Version 1)
Quarter: 2023Q1

REPORT INFORMATION
  Report Type: Spontaneous
  Country: US (occurrence: US)
  Receive Date: 20230306
  Receipt Date: 20230306
  Transmission Date: 20230417
  Serious: No
  Sender: FDA-Public Use
  Company Number: None

PATIENT

DRUGS (4)
  1. TIBSOVO [Suspect]
     Active Substance: IVOSIDENIB
     Indication: Cholangiocarcinoma
     Dosage: 500 MG, QD
     Route: 048
  2. TIBSOVO [Suspect]
     Active Substance: IVOSIDENIB
     Indication: Hepatocellular carcinoma
  3. LYNPARZA [Suspect]
     Active Substance: OLAPARIB
     Indication: Cholangiocarcinoma
     Dosage: 300 MG, QD
     Route: 048
  4. LYNPARZA [Suspect]
     Active Substance: OLAPARIB
     Indication: Hepatocellular carcinoma

REACTIONS (9)
  - Dyspepsia [Unknown]
  - Diarrhoea [Unknown]
  - Abdominal pain [Unknown]
  - Fatigue [Unknown]
  - Asthenia [Unknown]
  - Abdominal discomfort [Unknown]
  - Hypophagia [Unknown]
  - Abdominal distension [Unknown]
  - Pallor [Unknown]
